FAERS Safety Report 13305321 (Version 3)
Quarter: 2017Q2

REPORT INFORMATION
  Report Type: Spontaneous
  Country: US (occurrence: US)
  Receive Date: 20170308
  Receipt Date: 20170419
  Transmission Date: 20170830
  Serious: Yes (Disabling, Other)
  Sender: FDA-Public Use
  Company Number: US-CELGENEUS-USA-2017028905

PATIENT
  Age: 46 Year
  Sex: Male

DRUGS (2)
  1. OTEZLA [Suspect]
     Active Substance: APREMILAST
     Indication: PSORIATIC ARTHROPATHY
  2. OTEZLA [Suspect]
     Active Substance: APREMILAST
     Indication: PSORIASIS
     Dosage: 60 MILLIGRAM
     Route: 048
     Dates: start: 20170210, end: 20170404

REACTIONS (7)
  - Nausea [Not Recovered/Not Resolved]
  - Gait disturbance [Unknown]
  - Diarrhoea [Not Recovered/Not Resolved]
  - Muscular weakness [Unknown]
  - Pain in extremity [Unknown]
  - Flatulence [Unknown]
  - Anal haemorrhage [Not Recovered/Not Resolved]

NARRATIVE: CASE EVENT DATE: 20170210
